FAERS Safety Report 15698490 (Version 3)
Quarter: 2018Q4

REPORT INFORMATION
  Report Type: Report from Study
  Country: None (occurrence: US)
  Receive Date: 20181207
  Receipt Date: 20181219
  Transmission Date: 20190205
  Serious: Yes (Death, Hospitalization, Other)
  Sender: FDA-Public Use
  Company Number: US-ABBVIE-18S-163-2582320-00

PATIENT
  Age: 67 Year
  Sex: Male
  Weight: 59.93 kg

DRUGS (1)
  1. CREON [Suspect]
     Active Substance: PANCRELIPASE AMYLASE\PANCRELIPASE LIPASE\PANCRELIPASE PROTEASE
     Indication: PANCREAS TRANSPLANT
     Route: 048
     Dates: start: 1994

REACTIONS (7)
  - Urinary bladder haemorrhage [Fatal]
  - Pancreatic enzyme abnormality [Unknown]
  - Cardiac murmur [Not Recovered/Not Resolved]
  - Urinary bladder haemorrhage [Not Recovered/Not Resolved]
  - Bladder irritation [Unknown]
  - Aortic valve disease [Not Recovered/Not Resolved]
  - Nephropathy [Not Recovered/Not Resolved]

NARRATIVE: CASE EVENT DATE: 2012
